FAERS Safety Report 11156189 (Version 1)
Quarter: 2015Q2

REPORT INFORMATION
  Report Type: Spontaneous
  Country: US (occurrence: None)
  Receive Date: 20150601
  Receipt Date: 20150601
  Transmission Date: 20150821
  Serious: No
  Sender: FDA-Public Use
  Company Number: None

PATIENT
  Age: 50 Year
  Sex: Female

DRUGS (1)
  1. TECFIDERA [Suspect]
     Active Substance: DIMETHYL FUMARATE
     Indication: MULTIPLE SCLEROSIS
     Route: 048
     Dates: start: 20150424

REACTIONS (6)
  - Abdominal discomfort [None]
  - Therapy change [None]
  - Peripheral swelling [None]
  - Limb discomfort [None]
  - Flushing [None]
  - Erythema [None]

NARRATIVE: CASE EVENT DATE: 20150528
